FAERS Safety Report 4782446-5 (Version None)
Quarter: 2005Q3

REPORT INFORMATION
  Report Type: 
  Country: None (occurrence: None)
  Receive Date: 20050929
  Receipt Date: 20041103
  Transmission Date: 20060218
  Serious: No
  Sender: FDA-Public Use
  Company Number: 389537

PATIENT
  Age: 78 Year
  Sex: Female

DRUGS (6)
  1. COREG [Suspect]
     Dosage: 6.25MG PER DAY
     Route: 048
     Dates: start: 20041004
  2. SYNTHROID [Concomitant]
  3. LASIX [Concomitant]
  4. BEE PROPOLIS [Concomitant]
  5. UNKNOWN MEDICATION [Concomitant]
  6. ACCUPRIL [Concomitant]

REACTIONS (3)
  - DIZZINESS [None]
  - HEADACHE [None]
  - INSOMNIA [None]
